FAERS Safety Report 6828849-6 (Version None)
Quarter: 2010Q3

REPORT INFORMATION
  Report Type: 
  Country: None (occurrence: None)
  Receive Date: 20100709
  Receipt Date: 20070221
  Transmission Date: 20110219
  Serious: No
  Sender: FDA-Public Use
  Company Number: US-PFIZER INC-2007014981

PATIENT
  Sex: Female
  Weight: 50.8 kg

DRUGS (5)
  1. CHANTIX [Suspect]
     Indication: SMOKING CESSATION THERAPY
     Route: 048
     Dates: start: 20061201
  2. GLUCOSAMINE [Concomitant]
  3. ACETYLSALICYLIC ACID [Concomitant]
  4. REQUIP [Concomitant]
  5. CALCIUM CARBONATE [Concomitant]

REACTIONS (2)
  - DRUG DOSE OMISSION [None]
  - NAUSEA [None]
